FAERS Safety Report 19031060 (Version 2)
Quarter: 2021Q2

REPORT INFORMATION
  Report Type: Spontaneous
  Country: US (occurrence: US)
  Receive Date: 20210319
  Receipt Date: 20210402
  Transmission Date: 20210717
  Serious: Yes (Hospitalization)
  Sender: FDA-Public Use
  Company Number: US-ROCHE-2793149

PATIENT
  Sex: Female

DRUGS (20)
  1. FAMOTIDINE. [Concomitant]
     Active Substance: FAMOTIDINE
  2. TOVIAZ [Concomitant]
     Active Substance: FESOTERODINE FUMARATE
  3. BIOTIN [Concomitant]
     Active Substance: BIOTIN
  4. SINGULAIR [Concomitant]
     Active Substance: MONTELUKAST SODIUM
  5. ZYRTEC [Concomitant]
     Active Substance: CETIRIZINE HYDROCHLORIDE
  6. ROPINIROLE HYDROCHLORIDE. [Concomitant]
     Active Substance: ROPINIROLE HYDROCHLORIDE
  7. VITAMIN C [Concomitant]
     Active Substance: ASCORBIC ACID
  8. ASPIR LOW [Concomitant]
     Active Substance: ASPIRIN
  9. GABAPENTIN. [Concomitant]
     Active Substance: GABAPENTIN
  10. GARLIC. [Concomitant]
     Active Substance: GARLIC
  11. IPRATROPIUM [Concomitant]
     Active Substance: IPRATROPIUM
  12. ESBRIET [Suspect]
     Active Substance: PIRFENIDONE
     Indication: IDIOPATHIC PULMONARY FIBROSIS
     Dosage: 1 TABLET 3 TIMES  DAILY FOR  1 WEEK, THEN 2 TABLETS 3 TIMES  DAILY FOR  1 WEEK, THEN 3 TABLETS 3 TIM
     Route: 048
     Dates: start: 20210223
  13. COLACE [Concomitant]
     Active Substance: DOCUSATE SODIUM
  14. TRELEGY ELLIPTA [Concomitant]
     Active Substance: FLUTICASONE FUROATE\UMECLIDINIUM BROMIDE\VILANTEROL TRIFENATATE
     Dosage: 100 ? 62.5
  15. FISH OIL [Concomitant]
     Active Substance: FISH OIL
  16. VITAMIN E [Concomitant]
     Active Substance: .ALPHA.-TOCOPHEROL
  17. AMLODIPINE BESILATE [Concomitant]
     Active Substance: AMLODIPINE BESYLATE
     Dosage: 10?160 MG
  18. CALCIUM/VITAMIN D3 [Concomitant]
     Active Substance: CALCIUM\CHOLECALCIFEROL
     Dosage: 600 ? 800 M
  19. FLUTICASONE. [Concomitant]
     Active Substance: FLUTICASONE
     Dosage: 50 MCG/AC
  20. PREDNISONE. [Concomitant]
     Active Substance: PREDNISONE

REACTIONS (3)
  - Pneumonia [Recovered/Resolved]
  - Decreased appetite [Not Recovered/Not Resolved]
  - Fatigue [Not Recovered/Not Resolved]
